FAERS Safety Report 9431371 (Version 3)
Quarter: 2013Q3

REPORT INFORMATION
  Report Type: Report from Study
  Country: GB (occurrence: GB)
  Receive Date: 20130730
  Receipt Date: 20130912
  Transmission Date: 20140515
  Serious: Yes (Other)
  Sender: FDA-Public Use
  Company Number: GB-VERTEX PHARMACEUTICALS INC-2013-007379

PATIENT
  Age: 32 Year
  Sex: Male

DRUGS (3)
  1. VX-950 (TELAPREVIR) [Suspect]
     Indication: HEPATITIS C
     Dosage: 1125 MG, BID
     Route: 048
     Dates: start: 20130602
  2. INTERFERON [Suspect]
     Indication: HEPATITIS C
     Dosage: DOSAGE FORM: INJECTION
     Route: 058
     Dates: start: 20130602
  3. RIBAVIRIN [Suspect]
     Indication: HEPATITIS C
     Dosage: DOSAGE FORM: TABLET
     Route: 048
     Dates: start: 20130602

REACTIONS (7)
  - Vision blurred [Not Recovered/Not Resolved]
  - Fatigue [Not Recovered/Not Resolved]
  - Lethargy [Not Recovered/Not Resolved]
  - Eye pain [Not Recovered/Not Resolved]
  - Nausea [Not Recovered/Not Resolved]
  - Vomiting [Not Recovered/Not Resolved]
  - Anaemia [Not Recovered/Not Resolved]
